FAERS Safety Report 21020797 (Version 2)
Quarter: 2024Q1

REPORT INFORMATION
  Report Type: Other
  Country: CA (occurrence: CA)
  Receive Date: 20220629
  Receipt Date: 20240301
  Transmission Date: 20240410
  Serious: Yes (Hospitalization, Other)
  Sender: FDA-Public Use
  Company Number: CA-APOTEX-2022AP009696

PATIENT
  Age: 65 Year
  Sex: Male

DRUGS (12)
  1. RAMIPRIL [Suspect]
     Active Substance: RAMIPRIL
     Indication: Hypertension
     Dosage: 10 MILLIGRAM, QD
     Route: 065
  2. RAMIPRIL [Suspect]
     Active Substance: RAMIPRIL
     Dosage: UNK
     Route: 048
  3. RAMIPRIL [Suspect]
     Active Substance: RAMIPRIL
     Dosage: 5 MILLIGRAM, QD
     Route: 065
  4. SANDOSTATIN [Suspect]
     Active Substance: OCTREOTIDE ACETATE
     Indication: Acromegaly
     Dosage: 50 MICROGRAM (THERAPY DURATION -189.0 UNIT UNKNOWN)
     Route: 058
  5. SANDOSTATIN [Suspect]
     Active Substance: OCTREOTIDE ACETATE
     Dosage: 20 MILLIGRAM, Q.I.W
     Route: 030
  6. SANDOSTATIN [Suspect]
     Active Substance: OCTREOTIDE ACETATE
     Dosage: 20 MILLIGRAM, 1 EVERY 4 WEEKS
     Route: 030
  7. ACETAMINOPHEN [Concomitant]
     Active Substance: ACETAMINOPHEN
     Indication: Product used for unknown indication
     Dosage: UNK, QID
     Route: 048
  8. ASPIRIN [Concomitant]
     Active Substance: ASPIRIN
     Indication: Product used for unknown indication
     Dosage: 80.0 MILLIGRAM
     Route: 048
  9. CLONAZEPAM [Concomitant]
     Active Substance: CLONAZEPAM
     Indication: Product used for unknown indication
     Dosage: UNK
     Route: 048
  10. DESOXIMETASONE [Concomitant]
     Active Substance: DESOXIMETASONE
     Indication: Arthralgia
     Route: 065
  11. METFORMIN [Concomitant]
     Active Substance: METFORMIN HYDROCHLORIDE
     Indication: Product used for unknown indication
     Dosage: UNK
     Route: 048
  12. SENNOSIDES [Concomitant]
     Active Substance: SENNOSIDES
     Indication: Product used for unknown indication
     Dosage: UNK
     Route: 048

REACTIONS (42)
  - Back injury [Recovered/Resolved]
  - Back pain [Recovered/Resolved]
  - Blood pressure increased [Recovered/Resolved]
  - Blood pressure systolic increased [Recovered/Resolved]
  - Body temperature decreased [Recovered/Resolved]
  - Campylobacter infection [Recovered/Resolved]
  - Contusion [Recovered/Resolved]
  - Fall [Recovered/Resolved]
  - Foot fracture [Recovered/Resolved]
  - Heart rate increased [Recovered/Resolved]
  - Hot flush [Recovered/Resolved]
  - Hypokinesia [Recovered/Resolved]
  - Injection site pain [Recovered/Resolved]
  - Intermittent claudication [Recovered/Resolved]
  - Joint injury [Recovered/Resolved]
  - Loss of consciousness [Recovered/Resolved]
  - Lumbar hernia [Recovered/Resolved]
  - Wound [Recovered/Resolved]
  - Muscular weakness [Recovered/Resolved]
  - Pain [Recovered/Resolved]
  - Pain in extremity [Recovered/Resolved]
  - Rib fracture [Recovered/Resolved]
  - Sciatica [Recovered/Resolved]
  - Sleep apnoea syndrome [Recovered/Resolved]
  - Transfusion-related circulatory overload [Recovered/Resolved]
  - Gastric infarction [Recovered/Resolved]
  - Groin pain [Recovered/Resolved]
  - Intestinal infarction [Recovered/Resolved]
  - Movement disorder [Recovered/Resolved]
  - Muscle spasms [Recovered/Resolved]
  - Musculoskeletal stiffness [Recovered/Resolved]
  - Osteoarthritis [Recovered/Resolved]
  - Weight increased [Recovered/Resolved]
  - Headache [Recovered/Resolved]
  - Orthostatic hypotension [Recovered/Resolved]
  - Blood glucose increased [Recovered/Resolved]
  - Fatigue [Recovered/Resolved]
  - Vertigo [Recovered/Resolved]
  - Dizziness [Recovered/Resolved]
  - Cough [Recovered/Resolved]
  - Blood pressure decreased [Recovered/Resolved]
  - Drug ineffective [Recovered/Resolved]
